FAERS Safety Report 4319137-0 (Version None)
Quarter: 2004Q1

REPORT INFORMATION
  Report Type: 
  Country: None (occurrence: None)
  Receive Date: 20040318
  Receipt Date: 20020516
  Transmission Date: 20041129
  Serious: Yes (Hospitalization)
  Sender: FDA-Public Use
  Company Number: WAES 0205USA02070

PATIENT
  Age: 69 Year
  Sex: Female
  Weight: 84 kg

DRUGS (6)
  1. CHONDROITIN SULFATE SODIUM AND GLUCOSAMINE HYDROCHLORIDE [Concomitant]
  2. LANOXIN [Concomitant]
     Dates: start: 20010316
  3. PREMARIN [Concomitant]
     Indication: VULVOVAGINAL DRYNESS
     Route: 067
  4. LASIX [Concomitant]
     Indication: CARDIAC DISORDER
     Dates: start: 20010316
  5. VIOXX [Suspect]
     Indication: LOCALISED OSTEOARTHRITIS
     Route: 048
     Dates: start: 20001025, end: 20010328
  6. VIOXX [Suspect]
     Route: 048
     Dates: start: 20001025, end: 20010328

REACTIONS (13)
  - ANGINA UNSTABLE [None]
  - ASTHENIA [None]
  - CARDIAC FAILURE CONGESTIVE [None]
  - CARDIOMYOPATHY [None]
  - DIZZINESS [None]
  - DYSPNOEA [None]
  - EJECTION FRACTION DECREASED [None]
  - ELECTROCARDIOGRAM T WAVE ABNORMAL [None]
  - MITRAL VALVE INCOMPETENCE [None]
  - MYOCARDIAL ISCHAEMIA [None]
  - NAUSEA [None]
  - STRESS SYMPTOMS [None]
  - VENTRICULAR DYSFUNCTION [None]
